FAERS Safety Report 20245407 (Version 1)
Quarter: 2021Q4

REPORT INFORMATION
  Report Type: Spontaneous
  Country: US (occurrence: US)
  Receive Date: 20211229
  Receipt Date: 20211229
  Transmission Date: 20220303
  Serious: Yes (Other)
  Sender: FDA-Public Use
  Company Number: US-PFIZER INC-202101828581

PATIENT
  Age: 76 Year
  Weight: 84.807 kg

DRUGS (9)
  1. XALKORI [Suspect]
     Active Substance: CRIZOTINIB
     Dosage: 200 MG, 2X/DAY
  2. CODEINE [Concomitant]
     Active Substance: CODEINE
     Indication: Cough
     Dosage: UNK
  3. OXYBUTYNIN [Concomitant]
     Active Substance: OXYBUTYNIN
     Indication: Hypertonic bladder
     Dosage: UNK
  4. PROPANOL (PROPRANOLOL HYDROCHLORIDE) [Concomitant]
     Active Substance: PROPRANOLOL HYDROCHLORIDE
     Indication: Muscle relaxant therapy
     Dosage: UNK
  5. RESTORIL [Concomitant]
     Active Substance: TEMAZEPAM
     Indication: Insomnia
     Dosage: UNK
  6. FERRIC POLYSACCHARIDE COMPLEX [Concomitant]
     Active Substance: FERRIC POLYSACCHARIDE COMPLEX
     Indication: Mineral supplementation
     Dosage: UNK
  7. PRAVASTATIN [Concomitant]
     Active Substance: PRAVASTATIN
     Indication: Blood cholesterol
     Dosage: UNK
  8. BENZONATATE [Concomitant]
     Active Substance: BENZONATATE
     Indication: Cough
     Dosage: UNK
  9. TYLENOL [Concomitant]
     Active Substance: ACETAMINOPHEN
     Dosage: AS NEEDED

REACTIONS (9)
  - Second primary malignancy [Unknown]
  - Metastatic ocular melanoma [Unknown]
  - Malignant pleural effusion [Unknown]
  - Swelling [Unknown]
  - Hypotension [Unknown]
  - Dizziness [Unknown]
  - Hyperlipidaemia [Unknown]
  - Benign prostatic hyperplasia [Unknown]
  - Gastrooesophageal reflux disease [Unknown]
